FAERS Safety Report 10025137 (Version 1)
Quarter: 2014Q1

REPORT INFORMATION
  Report Type: Spontaneous
  Country: US (occurrence: US)
  Receive Date: 20140320
  Receipt Date: 20140320
  Transmission Date: 20141002
  Serious: Yes (Other)
  Sender: FDA-Public Use
  Company Number: US-B.I. PHARMACEUTICALS,INC./RIDGEFIELD-2014-BI-11724BP

PATIENT
  Age: 73 Year
  Sex: Female
  Weight: 81 kg

DRUGS (12)
  1. COMBIVENT [Suspect]
     Indication: ASTHMA
     Dosage: STRENGTH: 20 MCG / 100 MCG
     Route: 055
     Dates: start: 20131112
  2. NEBULIZER [Concomitant]
     Indication: ASTHMA
     Route: 055
  3. THEOPHYLLINE [Concomitant]
     Indication: ASTHMA
     Route: 048
  4. NOSE DROPS [Concomitant]
     Route: 065
  5. LEVEMIR FLEX PEN [Concomitant]
     Indication: DIABETES MELLITUS
     Route: 065
  6. SYMBICORT [Concomitant]
     Indication: ASTHMA
     Dosage: FORMULATION: INHALATION SPRAY
     Route: 055
  7. ALBUTEROL [Concomitant]
     Indication: ASTHMA
     Dosage: FORMULATION: INHALATION SPRAY
     Route: 055
  8. PROCARDIA [Concomitant]
     Indication: HYPERTENSION
     Route: 048
  9. GLIPIZIDE [Concomitant]
     Indication: DIABETES MELLITUS
     Route: 048
  10. GABAPENTIN [Concomitant]
     Indication: NERVOUS SYSTEM DISORDER
     Route: 048
  11. TRAVATAN [Concomitant]
     Indication: GLAUCOMA
  12. TYLENOL [Concomitant]
     Indication: ARTHRITIS
     Route: 048

REACTIONS (4)
  - Glaucoma [Unknown]
  - Throat irritation [Not Recovered/Not Resolved]
  - Cough [Not Recovered/Not Resolved]
  - Off label use [Unknown]
